FAERS Safety Report 14382461 (Version 1)
Quarter: 2018Q1

REPORT INFORMATION
  Report Type: Spontaneous
  Country: US (occurrence: US)
  Receive Date: 20180112
  Receipt Date: 20180112
  Transmission Date: 20180509
  Serious: Yes (Death, Other)
  Sender: FDA-Public Use
  Company Number: US-SUNOVION-2018SUN000110

PATIENT
  Age: 45 Year
  Sex: Female

DRUGS (4)
  1. SEEBRI [Suspect]
     Active Substance: GLYCOPYRRONIUM
     Route: 048
  2. CLONAZEPAM UNKNOWN FORMULATION [Suspect]
     Active Substance: CLONAZEPAM
     Route: 048
  3. HYDROMORPHONE [Suspect]
     Active Substance: HYDROMORPHONE
     Route: 048
  4. BACLOFEN. [Suspect]
     Active Substance: BACLOFEN
     Route: 048

REACTIONS (2)
  - Death [Fatal]
  - Incorrect route of drug administration [None]

NARRATIVE: CASE EVENT DATE: 2017
